FAERS Safety Report 5661254-7 (Version None)
Quarter: 2008Q1

REPORT INFORMATION
  Report Type: 
  Country: None (occurrence: None)
  Receive Date: 20080312
  Receipt Date: 20080306
  Transmission Date: 20080703
  Serious: Yes (Other)
  Sender: FDA-Public Use
  Company Number: B0508685A

PATIENT
  Age: 62 Year
  Sex: Male

DRUGS (4)
  1. VALTREX [Suspect]
     Indication: HERPES ZOSTER
     Dosage: 1000MG THREE TIMES PER DAY
     Route: 048
     Dates: start: 20080213
  2. UNSPECIFIED MEDICATION [Concomitant]
     Route: 065
  3. FAMOTIDINE [Concomitant]
  4. ANTIHYPERTENSIVE [Concomitant]

REACTIONS (3)
  - DIZZINESS [None]
  - DYSARTHRIA [None]
  - DYSCALCULIA [None]
